FAERS Safety Report 7126496-2 (Version None)
Quarter: 2010Q4

REPORT INFORMATION
  Report Type: 
  Country: None (occurrence: None)
  Receive Date: 20101129
  Receipt Date: 20101115
  Transmission Date: 20110411
  Serious: Yes (Hospitalization)
  Sender: FDA-Public Use
  Company Number: CN-MYLANLABS-2010S1021445

PATIENT
  Age: 58 Year
  Sex: Male

DRUGS (8)
  1. AMIODARONE [Suspect]
     Indication: ARRHYTHMIA
     Dosage: 1200MG/DAY FOR ONE MONTH
     Route: 048
     Dates: start: 20021001
  2. AMIODARONE [Suspect]
     Dosage: 800MG/DAY FOR 2 MONTHS
     Route: 048
  3. AMIODARONE [Suspect]
     Dosage: 600MG/DAY FOR 2 MONTHS
     Route: 048
  4. AMIODARONE [Suspect]
     Dosage: 400MG/DAY FOR 3 MONTHS
     Route: 048
  5. AMIODARONE [Suspect]
     Dosage: 200MG/DAY TO 27 FEB 2004
     Route: 048
     Dates: end: 20040227
  6. LEVOFLOXACIN [Concomitant]
     Indication: LUNG INFECTION
  7. METRONIDAZOLE [Concomitant]
     Indication: PNEUMONITIS
     Dosage: 0.5% 100ML, TWICE/D, IV FOR 20 D
     Route: 042
     Dates: start: 20040227
  8. CEFTRIAXONE [Concomitant]
     Indication: LUNG INFECTION
     Route: 065

REACTIONS (2)
  - INFECTION PROTOZOAL [None]
  - PNEUMONITIS [None]
